FAERS Safety Report 7307594-7 (Version None)
Quarter: 2011Q1

REPORT INFORMATION
  Report Type: 
  Country: None (occurrence: None)
  Receive Date: 20110223
  Receipt Date: 20110208
  Transmission Date: 20110831
  Serious: Yes (Hospitalization, Disabling)
  Sender: FDA-Public Use
  Company Number: US-PERRIGO-11US000474

PATIENT
  Sex: Male
  Weight: 72.562 kg

DRUGS (3)
  1. MULTI-VITAMIN [Concomitant]
     Indication: VITAMIN SUPPLEMENTATION
     Dosage: UNKNOWN
     Route: 048
  2. TYLENOL EXTRA-STRENGTH [Concomitant]
     Indication: HEADACHE
     Dosage: 4-5 CAPLETS, UNKNOWN
     Route: 048
     Dates: start: 20100131, end: 20100131
  3. DIPHENHYDRAMINE HCL [Suspect]
     Indication: SLEEP DISORDER
     Dosage: 20 ML, Q4 H FOR 2 DOSES FOR 2 NIGHTS
     Route: 048
     Dates: start: 20100130, end: 20100131

REACTIONS (16)
  - HEARING IMPAIRED [None]
  - NERVOUSNESS [None]
  - TINNITUS [None]
  - PALPITATIONS [None]
  - ASTHENIA [None]
  - DIZZINESS [None]
  - ANXIETY [None]
  - ARRHYTHMIA [None]
  - CONFUSIONAL STATE [None]
  - MUSCLE TWITCHING [None]
  - HEADACHE [None]
  - VISION BLURRED [None]
  - FEELING JITTERY [None]
  - OFF LABEL USE [None]
  - ANTICHOLINERGIC SYNDROME [None]
  - DEPRESSION [None]
